FAERS Safety Report 21726528 (Version 2)
Quarter: 2022Q4

REPORT INFORMATION
  Report Type: Spontaneous
  Country: US (occurrence: US)
  Receive Date: 20221214
  Receipt Date: 20221223
  Transmission Date: 20230112
  Serious: No
  Sender: FDA-Public Use
  Company Number: US-ELI_LILLY_AND_COMPANY-US202212006327

PATIENT
  Sex: Female

DRUGS (6)
  1. CYMBALTA [Suspect]
     Active Substance: DULOXETINE HYDROCHLORIDE
     Indication: Product used for unknown indication
     Dosage: UNK UNK, UNKNOWN
     Route: 065
  2. HUMIRA [Suspect]
     Active Substance: ADALIMUMAB
     Indication: Crohn^s disease
     Route: 058
  3. PROZAC [Concomitant]
     Active Substance: FLUOXETINE HYDROCHLORIDE
     Indication: Product used for unknown indication
  4. COVID-19 VACCINE [Concomitant]
     Indication: COVID-19 immunisation
     Dosage: UNK UNK, UNKNOWN (FIRST DOSE)
     Dates: start: 20210101, end: 20210101
  5. COVID-19 VACCINE [Concomitant]
     Dosage: UNK UNK, UNKNOWN (SECOND DOSE)
     Dates: start: 20210201, end: 20210201
  6. COVID-19 VACCINE [Concomitant]
     Dosage: UNK UNK, UNKNOWN (THIRD DOSE)
     Dates: start: 20210801, end: 20210801

REACTIONS (3)
  - Adverse food reaction [Unknown]
  - Irritable bowel syndrome [Recovering/Resolving]
  - Muscular weakness [Unknown]
